FAERS Safety Report 4530104-4 (Version None)
Quarter: 2004Q4

REPORT INFORMATION
  Report Type: 
  Country: None (occurrence: None)
  Receive Date: 20041217
  Receipt Date: 20041206
  Transmission Date: 20050328
  Serious: Yes (Hospitalization)
  Sender: FDA-Public Use
  Company Number: PHNR2004AU01706

PATIENT
  Age: 14 Year
  Sex: Female

DRUGS (3)
  1. TEGRETOL [Suspect]
     Indication: CONVULSION
     Dosage: 200 MG MANE, 300 MG NOCTE
     Route: 048
     Dates: end: 20041101
  2. TEGRETOL [Suspect]
     Dosage: 200 MG MANE, 300 MG NOCTE
     Dates: start: 20041130
  3. HYDROCORTISONE [Concomitant]

REACTIONS (2)
  - EATING DISORDER [None]
  - MEDICATION ERROR [None]
